FAERS Safety Report 9913414 (Version 1)
Quarter: 2014Q1

REPORT INFORMATION
  Report Type: Spontaneous
  Country: US (occurrence: None)
  Receive Date: 20140219
  Receipt Date: 20140219
  Transmission Date: 20141002
  Serious: Yes (Hospitalization)
  Sender: FDA-Public Use
  Company Number: None

PATIENT
  Age: 84 Year
  Sex: Female
  Weight: 70.76 kg

DRUGS (2)
  1. VANCOMYCIN [Suspect]
  2. TOBRAMYCIN [Suspect]

REACTIONS (1)
  - Blood creatinine increased [None]
